FAERS Safety Report 9056050 (Version 1)
Quarter: 2013Q1

REPORT INFORMATION
  Report Type: Spontaneous
  Country: US (occurrence: US)
  Receive Date: 20130205
  Receipt Date: 20130205
  Transmission Date: 20140127
  Serious: Yes (Other)
  Sender: FDA-Public Use
  Company Number: US-JNJFOC-20130115966

PATIENT
  Age: 35 Year
  Sex: Female
  Weight: 97.52 kg

DRUGS (5)
  1. TOPAMAX [Suspect]
     Indication: EPILEPSY
     Dosage: 100 MG 2 TIMES DAILY + 25 MG TWICE DAILY= 250 MG/DAY
     Route: 048
     Dates: start: 2010
  2. FIORICET [Concomitant]
     Indication: MIGRAINE
     Dosage: 50/326/40
     Route: 065
  3. LEXAPRO [Concomitant]
     Indication: DEPRESSION
     Route: 065
  4. CANNABIS SATIVA SUBSP. INDICA TOP [Concomitant]
     Indication: HEADACHE
     Route: 065
  5. CANNABIS SATIVA SUBSP. INDICA TOP [Concomitant]
     Indication: CONVULSION
     Route: 065

REACTIONS (1)
  - PCO2 decreased [Not Recovered/Not Resolved]
